FAERS Safety Report 8622922-8 (Version None)
Quarter: 2012Q3

REPORT INFORMATION
  Report Type: 
  Country: None (occurrence: None)
  Receive Date: 20120827
  Receipt Date: 20120823
  Transmission Date: 20120928
  Serious: Yes (Hospitalization, Other)
  Sender: FDA-Public Use
  Company Number: PHHY2012FR056823

PATIENT
  Sex: Male

DRUGS (4)
  1. ACETAMINOPHEN [Concomitant]
  2. IBUPROFEN [Concomitant]
  3. TRILEPTAL [Suspect]
     Indication: PARTIAL SEIZURES
     Dates: start: 20120101
  4. ANTIEMETICS [Concomitant]

REACTIONS (5)
  - MELAS SYNDROME [None]
  - MIGRAINE [None]
  - CONVULSION [None]
  - COGNITIVE DISORDER [None]
  - CEREBROVASCULAR ACCIDENT [None]
